FAERS Safety Report 13105979 (Version 2)
Quarter: 2017Q1

REPORT INFORMATION
  Report Type: Spontaneous
  Country: US (occurrence: US)
  Receive Date: 20170111
  Receipt Date: 20170303
  Transmission Date: 20170428
  Serious: Yes (Other)
  Sender: FDA-Public Use
  Company Number: US-PFIZER INC-2016345078

PATIENT
  Age: 2 Year
  Sex: Male
  Weight: 15 kg

DRUGS (3)
  1. XYNTHA [Suspect]
     Active Substance: ANTIHEMOPHILIC FACTOR, HUMAN RECOMBINANT RESIDUES 743-1636 DELETED
     Dosage: 1000 IU, AS NEEDED (TWICE WEEKLY)
     Route: 040
     Dates: start: 20141202, end: 20161230
  2. XYNTHA [Suspect]
     Active Substance: ANTIHEMOPHILIC FACTOR, HUMAN RECOMBINANT RESIDUES 743-1636 DELETED
     Indication: FACTOR VIII DEFICIENCY
     Dosage: 500 IU, AS NEEDED (DAILY)
     Route: 042
  3. TYLENOL [Concomitant]
     Active Substance: ACETAMINOPHEN
     Dosage: UNK, AS NEEDED
     Route: 048

REACTIONS (11)
  - Haemarthrosis [Unknown]
  - Haematoma [Recovering/Resolving]
  - Factor VIII inhibition [Unknown]
  - Soft tissue haemorrhage [Unknown]
  - Peripheral swelling [Unknown]
  - Ecchymosis [Recovering/Resolving]
  - Anaemia [Unknown]
  - Tenderness [Unknown]
  - Pyrexia [Unknown]
  - Joint swelling [Recovering/Resolving]
  - Arthralgia [Recovering/Resolving]

NARRATIVE: CASE EVENT DATE: 20160831
